FAERS Safety Report 7973619-9 (Version None)
Quarter: 2011Q4

REPORT INFORMATION
  Report Type: 
  Country: None (occurrence: None)
  Receive Date: 20111209
  Receipt Date: 20111130
  Transmission Date: 20120403
  Serious: Yes (Other)
  Sender: FDA-Public Use
  Company Number: DKLU1075266

PATIENT
  Age: 42 Year
  Sex: Female

DRUGS (1)
  1. ONFI [Suspect]
     Indication: PRODUCT USED FOR UNKNOWN INDICATION
     Dosage: 20 MG MILLIGRAM(S), AT BEDTIME, ORAL
     Route: 048
     Dates: start: 20110101, end: 20110101

REACTIONS (3)
  - HALLUCINATION [None]
  - DELIRIUM [None]
  - CRYING [None]
